FAERS Safety Report 24716857 (Version 1)
Quarter: 2024Q4

REPORT INFORMATION
  Report Type: Spontaneous
  Country: US (occurrence: None)
  Receive Date: 20241210
  Receipt Date: 20241210
  Transmission Date: 20250115
  Serious: Yes (Hospitalization)
  Sender: Public
  Company Number: None

PATIENT
  Sex: Female

DRUGS (7)
  1. TADALAFIL [Suspect]
     Active Substance: TADALAFIL
     Dosage: OTHER QUANTITY : TAKE 2 TABLETS;?FREQUENCY : DAILY;?
     Route: 048
     Dates: start: 20181029
  2. GABAPENTIN [Concomitant]
     Active Substance: GABAPENTIN
  3. IRON [Concomitant]
     Active Substance: IRON
  4. KETOCONAZOLE [Concomitant]
     Active Substance: KETOCONAZOLE
  5. KLOR-CON M20 [Concomitant]
     Active Substance: POTASSIUM CHLORIDE
  6. REMODULIN [Concomitant]
     Active Substance: TREPROSTINIL
  7. TRAMADOL HCL [Concomitant]
     Active Substance: TRAMADOL HYDROCHLORIDE

REACTIONS (2)
  - Hospitalisation [None]
  - Intentional dose omission [None]
